FAERS Safety Report 14646981 (Version 1)
Quarter: 2018Q1

REPORT INFORMATION
  Report Type: Spontaneous
  Country: IT (occurrence: IT)
  Receive Date: 20180316
  Receipt Date: 20180316
  Transmission Date: 20180509
  Serious: Yes (Hospitalization)
  Sender: FDA-Public Use
  Company Number: IT-009507513-1803ITA006878

PATIENT
  Age: 10 Year
  Sex: Male

DRUGS (5)
  1. MONTELUKAST SODIUM. [Suspect]
     Active Substance: MONTELUKAST SODIUM
     Indication: ASTHMA
     Dosage: 5 MG/DAY
     Route: 048
  2. FLUTICASONE. [Suspect]
     Active Substance: FLUTICASONE
     Indication: ASTHMA
     Dosage: 1000 MICROGRAM/DAY
  3. SALMETEROL [Suspect]
     Active Substance: SALMETEROL
     Dosage: 50 MICROGRAM /DAY
  4. FLUTICASONE. [Suspect]
     Active Substance: FLUTICASONE
     Dosage: 100 MICROGRAM/DAY
  5. SALMETEROL [Suspect]
     Active Substance: SALMETEROL
     Indication: ASTHMA
     Dosage: 100 MICROGRAM/DAY

REACTIONS (1)
  - Drug ineffective [Recovered/Resolved]
